FAERS Safety Report 17617480 (Version 1)
Quarter: 2020Q2

REPORT INFORMATION
  Report Type: Spontaneous
  Country: US (occurrence: US)
  Receive Date: 20200402
  Receipt Date: 20200402
  Transmission Date: 20200713
  Serious: No
  Sender: FDA-Public Use
  Company Number: US-BAUSCH-BL-2020-007290

PATIENT
  Age: 34 Year
  Sex: Male
  Weight: 70.37 kg

DRUGS (3)
  1. LUMIFY [Suspect]
     Active Substance: BRIMONIDINE TARTRATE
     Indication: OCULAR HYPERAEMIA
     Dosage: 1 DROP IN EACH EYE TWICE A DAY, SOMETIMES 3 TIMES A DAY
     Route: 047
     Dates: start: 201809, end: 202002
  2. LUMIFY [Suspect]
     Active Substance: BRIMONIDINE TARTRATE
     Dosage: NEWEST BOTTLE, STARTED USING IN THE THE WEEK PRIOR TO THIS REPORT.?USED IT 2-3 TIMES.
     Route: 047
     Dates: start: 202002, end: 2020
  3. LUMIFY [Suspect]
     Active Substance: BRIMONIDINE TARTRATE
     Dosage: THE BOTTLE USED AFTER THE EXPERIENCED EVENTS.
     Route: 047
     Dates: start: 2020

REACTIONS (5)
  - Therapeutic product effect incomplete [Unknown]
  - Eye pain [Unknown]
  - Product dropper issue [Unknown]
  - Eye irritation [Unknown]
  - Product counterfeit [Unknown]

NARRATIVE: CASE EVENT DATE: 2020
